FAERS Safety Report 21408213 (Version 1)
Quarter: 2022Q4

REPORT INFORMATION
  Report Type: Spontaneous
  Country: US (occurrence: US)
  Receive Date: 20221004
  Receipt Date: 20221004
  Transmission Date: 20230112
  Serious: Yes (Other)
  Sender: FDA-Public Use
  Company Number: US-ALLERGAN-2223241US

PATIENT
  Sex: Male

DRUGS (6)
  1. FML [Suspect]
     Active Substance: FLUOROMETHOLONE
     Indication: Herpes ophthalmic
     Dosage: UNK UNK, BID
     Route: 047
  2. FML [Suspect]
     Active Substance: FLUOROMETHOLONE
     Dosage: UNK UNK, BID
     Route: 047
  3. REFRESH OPTIVE GEL DROPS [Concomitant]
     Active Substance: CARBOXYMETHYLCELLULOSE SODIUM\GLYCERIN
     Dosage: UNK
  4. Refresh Relieva PF UD [Concomitant]
     Dosage: UNK
  5. BRIMONIDINE [Concomitant]
     Active Substance: BRIMONIDINE TARTRATE
     Indication: Intraocular pressure increased
     Dosage: UNK
  6. TIMOLOL [Concomitant]
     Active Substance: TIMOLOL
     Indication: Intraocular pressure increased
     Dosage: UNK

REACTIONS (4)
  - Cataract [Unknown]
  - Product use in unapproved indication [Unknown]
  - Vision blurred [Not Recovered/Not Resolved]
  - Product complaint [Unknown]

NARRATIVE: CASE EVENT DATE: 20150101
